FAERS Safety Report 6395357-9 (Version None)
Quarter: 2009Q4

REPORT INFORMATION
  Report Type: 
  Country: None (occurrence: None)
  Receive Date: 20091009
  Receipt Date: 20091001
  Transmission Date: 20100525
  Serious: Yes (Hospitalization)
  Sender: FDA-Public Use
  Company Number: DE-ABBOTT-09P-062-0563334-00

PATIENT
  Sex: Male
  Weight: 72 kg

DRUGS (3)
  1. HUMIRA [Suspect]
     Indication: ANKYLOSING SPONDYLITIS
     Dates: end: 20081001
  2. HUMIRA [Suspect]
     Indication: RHEUMATOID ARTHRITIS
     Dates: start: 20090301
  3. GLUCOCORTICOIDS [Concomitant]
     Indication: ANKYLOSING SPONDYLITIS
     Route: 048

REACTIONS (1)
  - HIP ARTHROPLASTY [None]
